FAERS Safety Report 9024505 (Version 1)
Quarter: 2013Q1

REPORT INFORMATION
  Report Type: Spontaneous
  Country: AU (occurrence: AU)
  Receive Date: 20130121
  Receipt Date: 20130121
  Transmission Date: 20140127
  Serious: Yes (Other)
  Sender: FDA-Public Use
  Company Number: AU-RANBAXY-2013R3-64346

PATIENT
  Age: 31 None
  Sex: Female

DRUGS (1)
  1. VALACYCLOVIR [Suspect]
     Indication: GENITAL HERPES
     Dosage: 500 MG/DAY
     Route: 065
     Dates: start: 20121228

REACTIONS (2)
  - Drug ineffective [Unknown]
  - Exposure during pregnancy [Unknown]
